FAERS Safety Report 7354021-X (Version None)
Quarter: 2011Q1

REPORT INFORMATION
  Report Type: 
  Country: None (occurrence: None)
  Receive Date: 20110315
  Receipt Date: 20110309
  Transmission Date: 20110831
  Serious: Yes (Death, Other)
  Sender: FDA-Public Use
  Company Number: PHHY2011JP19798

PATIENT
  Age: 59 Year
  Sex: Male

DRUGS (1)
  1. NEORAL [Suspect]
     Indication: BONE MARROW TRANSPLANT

REACTIONS (4)
  - PNEUMONIA CYTOMEGALOVIRAL [None]
  - CYTOMEGALOVIRUS INFECTION [None]
  - CEREBRAL TOXOPLASMOSIS [None]
  - ACUTE GRAFT VERSUS HOST DISEASE IN SKIN [None]
